FAERS Safety Report 19499493 (Version 1)
Quarter: 2021Q3

REPORT INFORMATION
  Report Type: Spontaneous
  Country: CN (occurrence: CN)
  Receive Date: 20210707
  Receipt Date: 20210707
  Transmission Date: 20211014
  Serious: Yes (Other)
  Sender: FDA-Public Use
  Company Number: CN-ROCHE-2862731

PATIENT
  Age: 41 Year
  Sex: Female

DRUGS (12)
  1. VINCRISTINE [Concomitant]
     Active Substance: VINCRISTINE
     Dosage: R?DA?EPOCH
     Dates: start: 20170602
  2. ETOPOSIDE. [Concomitant]
     Active Substance: ETOPOSIDE
     Dosage: R?DA?EPOCH
     Dates: start: 20170602
  3. MABTHERA [Suspect]
     Active Substance: RITUXIMAB
     Dosage: R?DA?EPOCH
     Route: 065
     Dates: start: 20170602
  4. CYCLOPHOSPHAMIDE. [Concomitant]
     Active Substance: CYCLOPHOSPHAMIDE
     Indication: DIFFUSE LARGE B-CELL LYMPHOMA
     Dosage: R?CHOEP
     Dates: start: 20170318
  5. DOXORUBICIN [Concomitant]
     Active Substance: DOXORUBICIN
     Dosage: R?DA?EPOCH
     Dates: start: 20170602
  6. PREDNISONE. [Concomitant]
     Active Substance: PREDNISONE
     Dosage: R?DA?EPOCH
     Dates: start: 20170602
  7. CYCLOPHOSPHAMIDE. [Concomitant]
     Active Substance: CYCLOPHOSPHAMIDE
     Dosage: R?DA?EPOCH
     Dates: start: 20170602
  8. DOXORUBICIN [Concomitant]
     Active Substance: DOXORUBICIN
     Indication: DIFFUSE LARGE B-CELL LYMPHOMA
     Dosage: R?CHOEP
     Dates: start: 20170318
  9. PREDNISONE. [Concomitant]
     Active Substance: PREDNISONE
     Indication: DIFFUSE LARGE B-CELL LYMPHOMA
     Dosage: R?CHOEP
     Dates: start: 20170318
  10. ETOPOSIDE. [Concomitant]
     Active Substance: ETOPOSIDE
     Indication: DIFFUSE LARGE B-CELL LYMPHOMA
     Dosage: R?CHOEP
     Dates: start: 20170318
  11. MABTHERA [Suspect]
     Active Substance: RITUXIMAB
     Indication: DIFFUSE LARGE B-CELL LYMPHOMA
     Dosage: R?CHOEP
     Route: 065
     Dates: start: 20170318
  12. VINCRISTINE [Concomitant]
     Active Substance: VINCRISTINE
     Indication: DIFFUSE LARGE B-CELL LYMPHOMA
     Dosage: R?CHOEP
     Dates: start: 20170318

REACTIONS (1)
  - Hydrocephalus [Unknown]
